FAERS Safety Report 9381641 (Version 3)
Quarter: 2017Q4

REPORT INFORMATION
  Report Type: Spontaneous
  Country: CA (occurrence: CA)
  Receive Date: 20130703
  Receipt Date: 20171101
  Transmission Date: 20180321
  Serious: Yes (Other)
  Sender: FDA-Public Use
  Company Number: CA-PFIZER INC-2013194285

PATIENT
  Age: 57 Year
  Sex: Male

DRUGS (12)
  1. CORTEF [Concomitant]
     Active Substance: HYDROCORTISONE
     Dosage: 20 MG, DAILY (10 MG AM, 5 MG AT LUNCH, 5 MG AT BEDTIME)
     Route: 048
  2. DOSTINEX [Concomitant]
     Active Substance: CABERGOLINE
     Dosage: 0.5 MG, 2X/WEEK (ON WEDNESDAY AND SATURDAY)
     Route: 048
     Dates: start: 2012
  3. ANDROGEL [Concomitant]
     Active Substance: TESTOSTERONE
     Dosage: 50 MG, DAILY
  4. SYNTHROID [Concomitant]
     Active Substance: LEVOTHYROXINE SODIUM
     Dosage: 0.125 MG, DAILY
     Route: 048
  5. ASAPHEN [Concomitant]
     Active Substance: ASPIRIN
     Dosage: 80 MG, DAILY
     Route: 048
  6. AUTOGEN [Concomitant]
     Dosage: UNK
  7. METFORMIN [Concomitant]
     Active Substance: METFORMIN HYDROCHLORIDE
     Dosage: 500 MG, 2X/DAY (AT BREAKFAST AND SUPPER)
     Route: 048
  8. CALCIUM [Concomitant]
     Active Substance: CALCIUM
     Dosage: 500 MG, 2X/DAY (AT LUNCH AND SUPPER)
     Route: 048
  9. SOMAVERT [Suspect]
     Active Substance: PEGVISOMANT
     Dosage: 40 MG (2 INJECTIONS OF 20 MG EACH), DAILY
     Route: 058
     Dates: start: 2008
  10. VITAMIN D [Concomitant]
     Active Substance: CHOLECALCIFEROL
     Dosage: 10000 IU, WEEKLY (ON SATURDAYS)
  11. SOMAVERT [Suspect]
     Active Substance: PEGVISOMANT
     Indication: ACROMEGALY
     Dosage: 30 MG, UNK
     Route: 058
     Dates: start: 20070101
  12. VITAMIN B [Concomitant]
     Active Substance: VITAMIN B
     Dosage: UNK

REACTIONS (5)
  - Heart rate decreased [Unknown]
  - Blood glucose abnormal [Not Recovered/Not Resolved]
  - Arthritis [Not Recovered/Not Resolved]
  - Drug effect delayed [Recovered/Resolved]
  - Product use issue [Unknown]

NARRATIVE: CASE EVENT DATE: 2008
